FAERS Safety Report 5809755-2 (Version None)
Quarter: 2008Q3

REPORT INFORMATION
  Report Type: 
  Country: None (occurrence: None)
  Receive Date: 20080715
  Receipt Date: 20080709
  Transmission Date: 20090109
  Serious: Yes (Death)
  Sender: FDA-Public Use
  Company Number: JP-AVENTIS-200812137JP

PATIENT
  Age: 74 Year
  Sex: Male

DRUGS (4)
  1. TAXOTERE [Suspect]
  2. FLUOROURACIL [Concomitant]
  3. CISPLATIN [Concomitant]
  4. RADIATION [Concomitant]
     Dosage: DOSE: 40 GY

REACTIONS (1)
  - INTERSTITIAL LUNG DISEASE [None]
